FAERS Safety Report 6030913-9 (Version None)
Quarter: 2009Q1

REPORT INFORMATION
  Report Type: 
  Country: None (occurrence: None)
  Receive Date: 20090106
  Receipt Date: 20081227
  Transmission Date: 20090719
  Serious: Yes (Other)
  Sender: FDA-Public Use
  Company Number: 038790

PATIENT
  Age: 19 Year

DRUGS (1)
  1. PLAN B [Suspect]
     Indication: CONTRACEPTION
     Dosage: 2 TABLET, SINGLE, ORAL
     Route: 048
     Dates: start: 20081226, end: 20081226

REACTIONS (6)
  - ALCOHOL USE [None]
  - ANXIETY [None]
  - CONVULSION [None]
  - FEELING HOT [None]
  - LOSS OF CONSCIOUSNESS [None]
  - TREMOR [None]
